FAERS Safety Report 7000833-1 (Version None)
Quarter: 2010Q3

REPORT INFORMATION
  Report Type: 
  Country: None (occurrence: None)
  Receive Date: 20100920
  Receipt Date: 20100301
  Transmission Date: 20110219
  Serious: No
  Sender: FDA-Public Use
  Company Number: US-ASTRAZENECA-2010SE09157

PATIENT
  Age: 52 Year
  Sex: Female
  Weight: 139.3 kg

DRUGS (10)
  1. SEROQUEL XR [Suspect]
     Indication: BIPOLAR DISORDER
     Route: 048
     Dates: start: 20080101, end: 20100201
  2. LOVASTATIN [Concomitant]
     Route: 065
  3. LISINOPRIL [Concomitant]
     Route: 065
  4. HALDOL [Concomitant]
     Route: 065
  5. AMLODIPINE [Concomitant]
     Route: 065
  6. METFORMIN HCL [Concomitant]
     Route: 065
  7. LEVOTHYROXINE [Concomitant]
     Route: 065
  8. HYDROCHLOROTHIAZIDE [Concomitant]
     Route: 065
  9. VITAMIN D [Concomitant]
     Route: 065
  10. ASPIRIN [Concomitant]
     Route: 065

REACTIONS (11)
  - CELLULITIS [None]
  - DRUG DOSE OMISSION [None]
  - FEELING JITTERY [None]
  - HOT FLUSH [None]
  - INSOMNIA [None]
  - NIGHTMARE [None]
  - PSORIASIS [None]
  - THINKING ABNORMAL [None]
  - TOOTH ABSCESS [None]
  - TREMOR [None]
  - VISUAL IMPAIRMENT [None]
